FAERS Safety Report 8092053-7 (Version None)
Quarter: 2012Q1

REPORT INFORMATION
  Report Type: 
  Country: None (occurrence: None)
  Receive Date: 20120129
  Receipt Date: 20111128
  Transmission Date: 20120608
  Serious: No
  Sender: FDA-Public Use
  Company Number: US-ABBOTT-11P-163-0872984-00

PATIENT
  Sex: Male

DRUGS (4)
  1. HUMIRA [Suspect]
     Indication: PRODUCT USED FOR UNKNOWN INDICATION
     Dates: start: 20111001
  2. HUMIRA [Suspect]
  3. HUMIRA [Suspect]
     Dates: start: 20111110, end: 20111110
  4. HUMIRA [Suspect]
     Dosage: 2 PENS THEN REVERT TO 1 PEN EVERY 2 WEEKS
     Dates: start: 20111103, end: 20111103

REACTIONS (3)
  - ABDOMINAL PAIN UPPER [None]
  - DIARRHOEA [None]
  - ABDOMINAL PAIN [None]
